FAERS Safety Report 7440819-6 (Version None)
Quarter: 2011Q2

REPORT INFORMATION
  Report Type: 
  Country: None (occurrence: None)
  Receive Date: 20110427
  Receipt Date: 20110420
  Transmission Date: 20111010
  Serious: Yes (Hospitalization)
  Sender: FDA-Public Use
  Company Number: US-BAXTER-2011BH008322

PATIENT
  Age: 13 Year
  Sex: Female
  Weight: 55 kg

DRUGS (4)
  1. GAMMAGARD LIQUID [Suspect]
     Indication: IMMUNODEFICIENCY
     Route: 042
     Dates: start: 20110301, end: 20110301
  2. DIPHENHYDRAMINE [Concomitant]
     Route: 048
  3. ACETAMINOPHEN [Concomitant]
     Route: 048
  4. IMMUNOGLOBULIN HUMAN NORMAL [Concomitant]
     Route: 058

REACTIONS (7)
  - BACK PAIN [None]
  - VOMITING [None]
  - NAUSEA [None]
  - MALAISE [None]
  - MYALGIA [None]
  - HEADACHE [None]
  - MUSCULOSKELETAL STIFFNESS [None]
